FAERS Safety Report 9401128 (Version 1)
Quarter: 2013Q3

REPORT INFORMATION
  Report Type: Spontaneous
  Country: AU (occurrence: AU)
  Receive Date: 20130715
  Receipt Date: 20130715
  Transmission Date: 20140515
  Serious: Yes (Hospitalization)
  Sender: FDA-Public Use
  Company Number: AU-ACTELION-A-CH2013-85761

PATIENT
  Age: 67 Year
  Sex: Male
  Weight: 67 kg

DRUGS (4)
  1. TRACLEER [Suspect]
     Indication: PULMONARY HYPERTENSION
     Dosage: 62.5 MG, BID
     Route: 048
     Dates: start: 20130618, end: 20130623
  2. RIVAROXABAN [Concomitant]
  3. FUROSEMIDE [Concomitant]
  4. SLOW K [Concomitant]
     Indication: PULMONARY HYPERTENSION

REACTIONS (2)
  - Atrial flutter [Recovered/Resolved]
  - Dyspnoea [Recovered/Resolved]
